FAERS Safety Report 25359265 (Version 1)
Quarter: 2025Q2

REPORT INFORMATION
  Report Type: Spontaneous
  Country: FR (occurrence: FR)
  Receive Date: 20250526
  Receipt Date: 20250526
  Transmission Date: 20250716
  Serious: Yes (Death, Other)
  Sender: AMGEN
  Company Number: FR-AMGEN-FRASP2025100244

PATIENT
  Age: 15 Year
  Sex: Female

DRUGS (6)
  1. ECULIZUMAB [Suspect]
     Active Substance: ECULIZUMAB
     Indication: Platelet count decreased
     Route: 065
  2. LAMOTRIGINE [Concomitant]
     Active Substance: LAMOTRIGINE
     Dosage: 400 MILLIGRAM, QD
  3. CLOBAZAM [Concomitant]
     Active Substance: CLOBAZAM
     Dosage: 40 MILLIGRAM, QD
  4. PERAMPANEL [Concomitant]
     Active Substance: PERAMPANEL
     Dosage: 6 MILLIGRAM, QD
  5. PREDNISOLONE [Concomitant]
     Active Substance: PREDNISOLONE
  6. SIROLIMUS [Concomitant]
     Active Substance: SIROLIMUS

REACTIONS (11)
  - Circulatory collapse [Fatal]
  - Generalised oedema [Fatal]
  - Multiple organ dysfunction syndrome [Fatal]
  - Brain injury [Fatal]
  - Renal disorder [Fatal]
  - Liver disorder [Fatal]
  - Cytokine storm [Unknown]
  - Cardiogenic shock [Unknown]
  - Nervous system disorder [Unknown]
  - Capillary leak syndrome [Unknown]
  - Off label use [Unknown]
